FAERS Safety Report 22026220 (Version 1)
Quarter: 2023Q1

REPORT INFORMATION
  Report Type: Spontaneous
  Country: US (occurrence: None)
  Receive Date: 20230223
  Receipt Date: 20230223
  Transmission Date: 20230417
  Serious: No
  Sender: FDA-Public Use
  Company Number: US-ROCHE-3162145

PATIENT
  Sex: Female

DRUGS (14)
  1. XOLAIR [Suspect]
     Active Substance: OMALIZUMAB
     Indication: Asthma
     Route: 058
  2. XOLAIR [Suspect]
     Active Substance: OMALIZUMAB
  3. XOLAIR [Suspect]
     Active Substance: OMALIZUMAB
  4. ALBUTEROL [Concomitant]
     Active Substance: ALBUTEROL
  5. AMBIEN [Concomitant]
     Active Substance: ZOLPIDEM TARTRATE
  6. ATORVASTATIN [Concomitant]
     Active Substance: ATORVASTATIN
  7. BELBUCA [Concomitant]
     Active Substance: BUPRENORPHINE HYDROCHLORIDE
  8. BREO ELLIPTA [Concomitant]
     Active Substance: FLUTICASONE FUROATE\VILANTEROL TRIFENATATE
  9. EPINEPHRINE [Concomitant]
     Active Substance: EPINEPHRINE
     Dosage: 30MG/30ML
  10. FASENRA [Concomitant]
     Active Substance: BENRALIZUMAB
  11. FLONASE [Concomitant]
     Active Substance: FLUTICASONE PROPIONATE
  12. FLUOXETINE [Concomitant]
     Active Substance: FLUOXETINE HYDROCHLORIDE
  13. IPRATROPIUM [Concomitant]
     Active Substance: IPRATROPIUM
  14. KLOR-CON [Concomitant]
     Active Substance: POTASSIUM CHLORIDE

REACTIONS (1)
  - COVID-19 [Recovered/Resolved]
